FAERS Safety Report 4613934-X (Version None)
Quarter: 2005Q1

REPORT INFORMATION
  Report Type: 
  Country: None (occurrence: None)
  Receive Date: 20050316
  Receipt Date: 20050303
  Transmission Date: 20050727
  Serious: Yes (Death, Hospitalization)
  Sender: FDA-Public Use
  Company Number: HQWYE878108MAR05

PATIENT
  Age: 56 Year
  Sex: Female

DRUGS (5)
  1. RAPAMUNE [Suspect]
     Indication: IMMUNOSUPPRESSANT DRUG THERAPY
     Dosage: 2 MG 1X PER 1 DAY, ORAL
     Route: 048
     Dates: start: 20050128, end: 20050219
  2. TACROLIMUS    (TACROLIMUS) [Concomitant]
  3. MEPREDNISONE             (MEPREDNISONE) [Concomitant]
  4. NIFEDIPINE [Concomitant]
  5. ATORVASTATIN CALCIUM [Concomitant]

REACTIONS (12)
  - ANAEMIA [None]
  - CARDIAC ARREST [None]
  - DEHYDRATION [None]
  - DIARRHOEA [None]
  - EPISTAXIS [None]
  - GASTROINTESTINAL DISORDER [None]
  - LUNG INFILTRATION [None]
  - MALAISE [None]
  - METABOLIC ACIDOSIS [None]
  - PULMONARY HAEMORRHAGE [None]
  - PYREXIA [None]
  - VENTRICULAR FIBRILLATION [None]
